FAERS Safety Report 9726845 (Version 2)
Quarter: 2014Q1

REPORT INFORMATION
  Report Type: Spontaneous
  Country: US (occurrence: US)
  Receive Date: 20131203
  Receipt Date: 20140102
  Transmission Date: 20141002
  Serious: Yes (Life-Threatening, Hospitalization, Other)
  Sender: FDA-Public Use
  Company Number: US-MILLENNIUM PHARMACEUTICALS, INC.-2013MPI001158

PATIENT
  Age: 74 Year
  Sex: Male
  Weight: 104.3 kg

DRUGS (7)
  1. VELCADE [Suspect]
     Indication: PLASMA CELL MYELOMA
     Dosage: 1.3 MG/M2, UNK
     Route: 042
     Dates: start: 20130826, end: 20131119
  2. BENDAMUSTINE HYDROCHLORIDE [Suspect]
     Indication: PLASMA CELL MYELOMA
     Dosage: 90 MG/M2, UNK
     Route: 042
     Dates: start: 20130826, end: 20131115
  3. DOXIL /00330904/ [Suspect]
     Indication: PLASMA CELL MYELOMA
     Dosage: 23 MG/M2, UNK
     Route: 065
     Dates: start: 20130829, end: 20131115
  4. DIGOXIN [Concomitant]
     Indication: SUPRAVENTRICULAR TACHYCARDIA
     Dosage: 250 ?G, UNK
     Route: 048
  5. OXYCODONE [Concomitant]
     Indication: PAIN
     Dosage: 5 MG, UNK
     Route: 048
  6. KEFLEX                             /00145501/ [Concomitant]
     Indication: CELLULITIS
     Dosage: 500 MG, QID
     Route: 048
     Dates: start: 20131119
  7. LIPITOR [Concomitant]
     Indication: HYPERLIPIDAEMIA
     Dosage: 20 MG, QD
     Route: 048
     Dates: start: 20050715

REACTIONS (1)
  - Meningitis [Recovered/Resolved]
